FAERS Safety Report 5494476-9 (Version None)
Quarter: 2007Q4

REPORT INFORMATION
  Report Type: 
  Country: None (occurrence: None)
  Receive Date: 20071022
  Receipt Date: 20071022
  Transmission Date: 20080405
  Serious: Yes (Other)
  Sender: FDA-Public Use
  Company Number: None

PATIENT
  Age: 41 Year
  Sex: Male
  Weight: 106.5953 kg

DRUGS (4)
  1. NARDIL [Suspect]
     Indication: DEPRESSION
     Dosage: 90 MG 30 MG/T.I.D. DENTAL
     Route: 004
     Dates: start: 19930401, end: 20071019
  2. NARDIL [Suspect]
     Indication: DYSTHYMIC DISORDER
     Dosage: 90 MG 30 MG/T.I.D. DENTAL
     Route: 004
     Dates: start: 19930401, end: 20071019
  3. NARDIL [Suspect]
     Indication: SOCIAL PHOBIA
     Dosage: 90 MG 30 MG/T.I.D. DENTAL
     Route: 004
     Dates: start: 19930401, end: 20071019
  4. NARDIL [Suspect]

REACTIONS (3)
  - DRUG EFFECT DECREASED [None]
  - DRUG WITHDRAWAL SYNDROME [None]
  - PHARMACEUTICAL PRODUCT COMPLAINT [None]
